FAERS Safety Report 5940960-0 (Version None)
Quarter: 2008Q4

REPORT INFORMATION
  Report Type: 
  Country: None (occurrence: None)
  Receive Date: 20081104
  Receipt Date: 20081027
  Transmission Date: 20090506
  Serious: Yes (Hospitalization)
  Sender: FDA-Public Use
  Company Number: US-ELI_LILLY_AND_COMPANY-US200808005978

PATIENT
  Sex: Female
  Weight: 74.83 kg

DRUGS (9)
  1. BYETTA [Suspect]
     Indication: TYPE 2 DIABETES MELLITUS
     Dosage: 5 UG, 2/D
     Route: 058
     Dates: start: 20060101
  2. BYETTA [Suspect]
     Dosage: 10 UG, 2/D
     Route: 058
  3. BYETTA [Suspect]
     Dosage: 5 UG, 2/D
     Route: 058
     Dates: end: 20080825
  4. GLUCOPHAGE [Concomitant]
     Indication: TYPE 2 DIABETES MELLITUS
     Dosage: 500 MG, 2/D
     Route: 048
  5. VYTORIN [Concomitant]
     Dosage: UNK, UNKNOWN
     Route: 048
     Dates: start: 20080701
  6. ZETIA [Concomitant]
     Dosage: 10 MG, DAILY (1/D)
     Route: 048
     Dates: end: 20080701
  7. XANAX [Concomitant]
     Dosage: 1 MG, AS NEEDED
     Route: 048
  8. SYNTHROID [Concomitant]
     Dosage: 112 UG, DAILY (1/D)
     Route: 048
  9. LASIX [Concomitant]
     Dosage: 40 MG, QOD
     Route: 048

REACTIONS (5)
  - ABDOMINAL PAIN UPPER [None]
  - ABDOMINAL TENDERNESS [None]
  - BLOOD TRIGLYCERIDES INCREASED [None]
  - INTESTINAL ISCHAEMIA [None]
  - WEIGHT DECREASED [None]
